FAERS Safety Report 5805585-6 (Version None)
Quarter: 2008Q3

REPORT INFORMATION
  Report Type: 
  Country: None (occurrence: None)
  Receive Date: 20080710
  Receipt Date: 20080710
  Transmission Date: 20090109
  Serious: Yes (Life-Threatening, Other)
  Sender: FDA-Public Use
  Company Number: None

PATIENT
  Age: 54 Year
  Sex: Female
  Weight: 58.9676 kg

DRUGS (4)
  1. REMICADE [Suspect]
     Indication: PSORIASIS
     Dosage: 330 MG Q 2 MONTHS IV DRIP
     Route: 041
     Dates: start: 20070101, end: 20080201
  2. REMICADE [Suspect]
     Indication: PSORIATIC ARTHROPATHY
     Dosage: 330 MG Q 2 MONTHS IV DRIP
     Route: 041
     Dates: start: 20070101, end: 20080201
  3. ENBREL [Suspect]
     Indication: PSORIASIS
     Dosage: 50 MG WEEKLY Q WEEK SQ
     Route: 058
     Dates: start: 20040123, end: 20061230
  4. ENBREL [Suspect]
     Indication: PSORIATIC ARTHROPATHY
     Dosage: 50 MG WEEKLY Q WEEK SQ
     Route: 058
     Dates: start: 20040123, end: 20061230

REACTIONS (1)
  - BREAST CANCER [None]
